FAERS Safety Report 6316946-3 (Version None)
Quarter: 2009Q3

REPORT INFORMATION
  Report Type: 
  Country: None (occurrence: None)
  Receive Date: 20090820
  Receipt Date: 20090818
  Transmission Date: 20100115
  Serious: Yes (Life-Threatening, Other)
  Sender: FDA-Public Use
  Company Number: PHHY2009AT34554

PATIENT
  Age: 75 Year
  Sex: Male

DRUGS (8)
  1. SINTROM [Suspect]
     Dosage: UNK
     Route: 030
  2. VOLTAREN [Suspect]
     Dosage: 6 DF, QD
  3. VITAMINES B [Suspect]
     Dosage: 6 DF, QD
  4. LISINOPRIL AND HYDROCHLOROTHIAZIDE [Concomitant]
     Dosage: 1 DF, QD
  5. DIGIMERCK [Concomitant]
     Dosage: 0.07MG HALF TABLETS DAILY
  6. LASIX [Concomitant]
     Dosage: 40 MG, UNK
  7. SELOKEN [Concomitant]
     Dosage: 475 MG, UNK
  8. UROSIN [Concomitant]
     Dosage: 300MG TABLETS HALF DAILY

REACTIONS (3)
  - HAEMATOMA [None]
  - HAEMOGLOBIN DECREASED [None]
  - RENAL FAILURE [None]
